FAERS Safety Report 13815453 (Version 1)
Quarter: 2017Q3

REPORT INFORMATION
  Report Type: Spontaneous
  Country: US (occurrence: US)
  Receive Date: 20170731
  Receipt Date: 20170731
  Transmission Date: 20171127
  Serious: Yes (Other)
  Sender: FDA-Public Use
  Company Number: US-LPDUSPRD-20170941

PATIENT
  Age: 6 Year
  Sex: Male

DRUGS (4)
  1. TACROLIMUS. [Suspect]
     Active Substance: TACROLIMUS
  2. CYCLOSPORINE INJECTION, USP (866-10) [Suspect]
     Active Substance: CYCLOSPORINE
     Dosage: UNKNOWN
     Route: 065
  3. PREDNISONE. [Suspect]
     Active Substance: PREDNISONE
  4. MYCOPHENOLATE MOFETIL. [Suspect]
     Active Substance: MYCOPHENOLATE MOFETIL

REACTIONS (1)
  - Enteritis [Unknown]
